FAERS Safety Report 9062704 (Version 1)
Quarter: 2013Q1

REPORT INFORMATION
  Report Type: Spontaneous
  Country: US (occurrence: US)
  Receive Date: 20130128
  Receipt Date: 20130128
  Transmission Date: 20140127
  Serious: Yes (Death, Hospitalization, Other)
  Sender: FDA-Public Use
  Company Number: US-PAR PHARMACEUTICAL, INC-2013SCPR005441

PATIENT
  Age: 19 Year
  Sex: Female

DRUGS (4)
  1. ALPRAZOLAM [Suspect]
     Indication: PRODUCT USED FOR UNKNOWN INDICATION
     Dosage: 3 MG, BID
     Route: 065
  2. ALPRAZOLAM [Suspect]
     Dosage: 20-30 TABLETS
     Route: 048
  3. FLUOXETINE [Suspect]
     Indication: PRODUCT USED FOR UNKNOWN INDICATION
     Dosage: 40 MG, PER DAY
     Route: 048
  4. FLUOXETINE [Suspect]
     Dosage: UNK, UNKNOWN
     Route: 048

REACTIONS (7)
  - Death [Fatal]
  - Completed suicide [Fatal]
  - Cardio-respiratory arrest [Fatal]
  - Coma [Unknown]
  - Toxicity to various agents [Fatal]
  - Hypoxic-ischaemic encephalopathy [Fatal]
  - Blood lactic acid decreased [Unknown]
